FAERS Safety Report 6186598-4 (Version None)
Quarter: 2009Q2

REPORT INFORMATION
  Report Type: 
  Country: None (occurrence: None)
  Receive Date: 20090507
  Receipt Date: 20090507
  Transmission Date: 20091009
  Serious: Yes (Other)
  Sender: FDA-Public Use
  Company Number: None

PATIENT
  Age: 65 Year
  Sex: Male

DRUGS (1)
  1. ALLOPURINOL [Suspect]
     Indication: NEPHROLITHIASIS
     Dosage: 1 TABLET DAILY (BY MOUTH)
     Route: 048
     Dates: start: 20090317, end: 20090320

REACTIONS (2)
  - PHOTOPHOBIA [None]
  - PRODUCT SUBSTITUTION ISSUE [None]
